FAERS Safety Report 9701476 (Version 1)
Quarter: 2013Q4

REPORT INFORMATION
  Report Type: Spontaneous
  Country: US (occurrence: US)
  Receive Date: 20131121
  Receipt Date: 20131121
  Transmission Date: 20140711
  Serious: Yes (Hospitalization)
  Sender: FDA-Public Use
  Company Number: US-BAXTER-2013BAX045577

PATIENT
  Age: 82 Year
  Sex: Male

DRUGS (5)
  1. DIANEAL LOW CALCIUM [Suspect]
     Indication: PERITONEAL DIALYSIS
     Route: 033
     Dates: start: 20121231
  2. DIANEAL LOW CALCIUM [Suspect]
     Indication: PERITONEAL DIALYSIS
     Route: 033
     Dates: start: 20121231
  3. DIANEAL LOW CALCIUM [Suspect]
     Indication: PERITONEAL DIALYSIS
     Route: 033
     Dates: start: 20121231
  4. EPOGEN [Concomitant]
     Indication: ANAEMIA
     Dosage: 20000 UNITS
     Route: 058
  5. EPOGEN [Concomitant]
     Dosage: 20000 UNITS
     Route: 058

REACTIONS (2)
  - Blood count abnormal [Recovering/Resolving]
  - Anaemia [Recovering/Resolving]
